FAERS Safety Report 6577234-3 (Version None)
Quarter: 2010Q1

REPORT INFORMATION
  Report Type: 
  Country: None (occurrence: None)
  Receive Date: 20100210
  Receipt Date: 20100131
  Transmission Date: 20100710
  Serious: Yes (Hospitalization, Disabling)
  Sender: FDA-Public Use
  Company Number: JP-ABBOTT-09P-087-0616584-00

PATIENT
  Sex: Female
  Weight: 46.5 kg

DRUGS (10)
  1. CEFDINIR [Suspect]
     Indication: CYSTITIS
     Route: 048
     Dates: start: 20091019, end: 20091022
  2. ZYLORIC [Concomitant]
     Indication: DRUG USE FOR UNKNOWN INDICATION
     Route: 048
     Dates: start: 20090925, end: 20091112
  3. NORVASC [Concomitant]
     Indication: DRUG USE FOR UNKNOWN INDICATION
     Route: 048
     Dates: start: 20090528, end: 20090925
  4. DIOVAN [Concomitant]
     Indication: DRUG USE FOR UNKNOWN INDICATION
     Route: 048
     Dates: start: 20090605, end: 20091112
  5. VESICARE [Concomitant]
     Indication: DRUG USE FOR UNKNOWN INDICATION
     Dates: end: 20091018
  6. BAYCARON [Concomitant]
     Indication: DRUG USE FOR UNKNOWN INDICATION
     Dates: start: 20090910, end: 20091112
  7. ADALAT CC [Concomitant]
     Indication: DRUG USE FOR UNKNOWN INDICATION
     Dates: start: 20090925
  8. EUGLUCON [Concomitant]
     Indication: DRUG USE FOR UNKNOWN INDICATION
     Dates: start: 20091225
  9. ARTIST [Concomitant]
     Indication: DRUG USE FOR UNKNOWN INDICATION
     Dates: start: 20090929
  10. CARDENALIN [Concomitant]
     Indication: DRUG USE FOR UNKNOWN INDICATION
     Dates: start: 20091008

REACTIONS (2)
  - DRUG ERUPTION [None]
  - HEPATIC FUNCTION ABNORMAL [None]
